FAERS Safety Report 17563118 (Version 1)
Quarter: 2020Q1

REPORT INFORMATION
  Report Type: Spontaneous
  Country: JP (occurrence: JP)
  Receive Date: 20200319
  Receipt Date: 20200319
  Transmission Date: 20200409
  Serious: Yes (Hospitalization, Other)
  Sender: FDA-Public Use
  Company Number: JP-GLAXOSMITHKLINE-JP2020JPN047037

PATIENT
  Age: 11 Year
  Sex: Male

DRUGS (2)
  1. SERETIDE [Suspect]
     Active Substance: FLUTICASONE PROPIONATE\SALMETEROL XINAFOATE
     Indication: ASTHMA
     Dosage: UNK, WHEN THE SYMPTOMS WERE AGGRAVATED
     Route: 055
  2. SERETIDE [Suspect]
     Active Substance: FLUTICASONE PROPIONATE\SALMETEROL XINAFOATE
     Dosage: APPROXIMATELY 20 TIMES IN TOTAL, SINGLE
     Route: 055

REACTIONS (7)
  - Palpitations [Unknown]
  - Nausea [Unknown]
  - Product use in unapproved indication [Unknown]
  - Accidental overdose [Unknown]
  - Hypokalaemia [Recovered/Resolved]
  - Headache [Unknown]
  - Product use issue [Unknown]
